FAERS Safety Report 9210882 (Version 1)
Quarter: 2013Q2

REPORT INFORMATION
  Report Type: Other
  Country: GB (occurrence: GB)
  Receive Date: 20130404
  Receipt Date: 20130404
  Transmission Date: 20140414
  Serious: Yes (Hospitalization)
  Sender: FDA-Public Use
  Company Number: GB-WATSON-2013-05586

PATIENT
  Age: 72 Year
  Sex: Male

DRUGS (5)
  1. NAPROXEN SODIUM (UNKNOWN) [Suspect]
     Indication: RHEUMATOID ARTHRITIS
     Dosage: 500 MG, BID
     Route: 048
     Dates: start: 20111114, end: 20121223
  2. PERINDOPRIL (UNKNOWN) [Suspect]
     Indication: PRODUCT USED FOR UNKNOWN INDICATION
     Dosage: UNK, UNK
     Route: 065
  3. SULPHASALAZINE [Suspect]
     Indication: RHEUMATOID ARTHRITIS
     Dosage: 500 MG, DAILY X 7 D
     Route: 048
     Dates: start: 20121203, end: 20121213
  4. SULPHASALAZINE [Suspect]
     Dosage: 500 MG, DAILY X3 D
     Route: 048
     Dates: start: 20121203, end: 20121213
  5. OMEPRAZOLE [Concomitant]
     Indication: PRODUCT USED FOR UNKNOWN INDICATION
     Route: 065

REACTIONS (5)
  - Blood creatinine increased [Recovered/Resolved]
  - Drug interaction [Recovered/Resolved]
  - Renal failure acute [Recovered/Resolved]
  - Diarrhoea [Recovered/Resolved]
  - Malaise [Recovered/Resolved]
